FAERS Safety Report 19047305 (Version 1)
Quarter: 2021Q1

REPORT INFORMATION
  Report Type: Spontaneous
  Country: FR (occurrence: FR)
  Receive Date: 20210323
  Receipt Date: 20210323
  Transmission Date: 20210420
  Serious: Yes (Death)
  Sender: FDA-Public Use
  Company Number: FR-BAXTER-2021BAX005134

PATIENT
  Age: 34 Year
  Sex: Female
  Weight: 64 kg

DRUGS (4)
  1. CELLTOP 100 MG/5 ML, SOLUTION INJECTABLE POUR PERFUSION [Suspect]
     Active Substance: ETOPOSIDE
     Indication: T-CELL LYMPHOMA
     Route: 041
     Dates: start: 20201105, end: 20201107
  2. ENDOXAN 1000 MG, POUDRE POUR SOLUTIONINJECTABLE [Suspect]
     Active Substance: CYCLOPHOSPHAMIDE
     Indication: T-CELL LYMPHOMA
     Route: 041
     Dates: start: 20201105, end: 20201105
  3. UROMITEXAN 1 G/10 ML, SOLUTION INJECTABLE POUR PERFUSION EN FLACON [Suspect]
     Active Substance: MESNA
     Indication: T-CELL LYMPHOMA
     Route: 065
     Dates: start: 20201105, end: 20201105
  4. DOXORUBICIN TEVA [Suspect]
     Active Substance: DOXORUBICIN
     Indication: T-CELL LYMPHOMA
     Route: 041
     Dates: start: 20201105, end: 20201105

REACTIONS (4)
  - Aplasia [Fatal]
  - Skin erosion [Fatal]
  - Condition aggravated [Fatal]
  - Erythema [Fatal]

NARRATIVE: CASE EVENT DATE: 20201106
